FAERS Safety Report 14559758 (Version 1)
Quarter: 2018Q1

REPORT INFORMATION
  Report Type: Spontaneous
  Country: US (occurrence: US)
  Receive Date: 20180220
  Receipt Date: 20180220
  Transmission Date: 20180509
  Serious: Yes (Death, Other)
  Sender: FDA-Public Use
  Company Number: None

PATIENT
  Age: 77 Year
  Sex: Female
  Weight: 84.15 kg

DRUGS (10)
  1. CALCIUM [Concomitant]
     Active Substance: CALCIUM
  2. ELIQUIS [Concomitant]
     Active Substance: APIXABAN
  3. VITAMIN D3 [Concomitant]
     Active Substance: CHOLECALCIFEROL
  4. TYKERB [Suspect]
     Active Substance: LAPATINIB DITOSYLATE
     Indication: BREAST CANCER
     Route: 048
     Dates: start: 20171214, end: 20180220
  5. DEXAMETHASONE. [Concomitant]
     Active Substance: DEXAMETHASONE
  6. FEMARA [Concomitant]
     Active Substance: LETROZOLE
  7. PROTONIX [Concomitant]
     Active Substance: PANTOPRAZOLE SODIUM
  8. VITAMIN E [Concomitant]
     Active Substance: .ALPHA.-TOCOPHEROL
  9. VITAMIN B12 [Concomitant]
     Active Substance: CYANOCOBALAMIN
  10. PROLIA [Concomitant]
     Active Substance: DENOSUMAB

REACTIONS (1)
  - Disease progression [None]

NARRATIVE: CASE EVENT DATE: 20180213
